FAERS Safety Report 7736526-2 (Version None)
Quarter: 2011Q3

REPORT INFORMATION
  Report Type: 
  Country: None (occurrence: None)
  Receive Date: 20110908
  Receipt Date: 20110902
  Transmission Date: 20111222
  Serious: Yes (Hospitalization)
  Sender: FDA-Public Use
  Company Number: DE-SANOFI-AVENTIS-2011SA056705

PATIENT
  Age: 62 Year
  Sex: Male
  Weight: 93 kg

DRUGS (5)
  1. XELODA [Suspect]
     Route: 048
     Dates: start: 20110829, end: 20110901
  2. XELODA [Suspect]
     Indication: RECTAL CANCER
     Route: 048
     Dates: start: 20110418
  3. THERAPEUTIC RADIOPHARMACEUTICALS [Suspect]
     Indication: RECTAL CANCER
     Dosage: 1.8 GY ON D1-33 W/O WEEKENDS
     Dates: start: 20110418, end: 20110527
  4. OXALIPLATIN [Suspect]
     Indication: RECTAL CANCER
     Route: 042
     Dates: start: 20110418, end: 20110418
  5. OXALIPLATIN [Suspect]
     Route: 042
     Dates: start: 20110829, end: 20110829

REACTIONS (1)
  - BLOOD CREATININE INCREASED [None]
